FAERS Safety Report 17226353 (Version 1)
Quarter: 2020Q1

REPORT INFORMATION
  Report Type: Spontaneous
  Country: US (occurrence: US)
  Receive Date: 20200102
  Receipt Date: 20200102
  Transmission Date: 20200409
  Serious: No
  Sender: FDA-Public Use
  Company Number: US-FOUNDATIONCONSUMERHC-2019-US-020591

PATIENT
  Age: 36 Year
  Sex: Female
  Weight: 66.68 kg

DRUGS (7)
  1. PLAN B ONE-STEP [Suspect]
     Active Substance: LEVONORGESTREL
     Indication: POST COITAL CONTRACEPTION
     Dosage: 1.5 MG X 1 DOSE
     Route: 048
     Dates: start: 20191025, end: 20191025
  2. SPIRULINA [Concomitant]
     Active Substance: SPIRULINA
  3. CHINESE HERBS [Concomitant]
     Active Substance: HERBALS
  4. PROBIOTICS [Concomitant]
     Active Substance: PROBIOTICS NOS
  5. KRILLEA [Concomitant]
  6. LYSINE [Concomitant]
     Active Substance: LYSINE
  7. VITAMIN C [Concomitant]
     Active Substance: ASCORBIC ACID

REACTIONS (3)
  - Fatigue [Not Recovered/Not Resolved]
  - Hot flush [Not Recovered/Not Resolved]
  - Feeling cold [Not Recovered/Not Resolved]

NARRATIVE: CASE EVENT DATE: 20191027
